FAERS Safety Report 9303884 (Version 1)
Quarter: 2013Q2

REPORT INFORMATION
  Report Type: Report from Study
  Country: ES (occurrence: ES)
  Receive Date: 20130522
  Receipt Date: 20130522
  Transmission Date: 20140414
  Serious: Yes (Hospitalization)
  Sender: FDA-Public Use
  Company Number: ES-GLAXOSMITHKLINE-B0892974A

PATIENT
  Age: 66 Year
  Sex: Female
  Weight: 68 kg

DRUGS (8)
  1. OFATUMUMAB [Suspect]
     Indication: HODGKIN^S DISEASE
     Route: 042
     Dates: start: 20130225
  2. CISPLATIN [Suspect]
     Indication: HODGKIN^S DISEASE
  3. INSULATARD [Concomitant]
     Indication: DIABETES MELLITUS
  4. METFORMIN [Concomitant]
  5. ADALAT [Concomitant]
  6. ATENOLOL [Concomitant]
  7. LEVOTHROID [Concomitant]
  8. ATORVASTATIN [Concomitant]

REACTIONS (1)
  - Renal failure acute [Not Recovered/Not Resolved]
